FAERS Safety Report 7464852-3 (Version None)
Quarter: 2011Q2

REPORT INFORMATION
  Report Type: 
  Country: None (occurrence: None)
  Receive Date: 20110509
  Receipt Date: 20100823
  Transmission Date: 20111010
  Serious: Yes (Hospitalization, Other)
  Sender: FDA-Public Use
  Company Number: US-BAYER-200836317NA

PATIENT
  Age: 59 Year
  Sex: Female
  Weight: 63 kg

DRUGS (18)
  1. AGGRENOX [Concomitant]
     Dosage: 1 PILL TWICE A DAY
     Route: 048
  2. NORVASC [Concomitant]
     Dosage: 5 MG, QD
     Route: 048
  3. FENTANYL [Concomitant]
     Route: 042
  4. INSULIN [INSULIN] [Concomitant]
  5. GLUCOTROL [Concomitant]
     Dosage: 10 MG, BID
     Route: 048
  6. PROTAMINE SULFATE [Concomitant]
     Route: 042
  7. TRASYLOL [Suspect]
     Indication: CORONARY ARTERY BYPASS
     Dosage: TEST DOSE 1ML. LOADING DOSE: 100CC/HR DECREASED TO 25CC/HR
     Route: 042
     Dates: start: 20070814, end: 20070814
  8. NITROGLYCERIN [Concomitant]
     Route: 042
  9. LASIX [Concomitant]
  10. IMDUR [Concomitant]
     Dosage: 30 MG, QD
     Route: 048
  11. ACETYLSALICYLIC ACID SRT [Concomitant]
     Dosage: 325 MG, QD
     Route: 048
  12. SYMLIN [Concomitant]
     Dosage: 10 UNITS WITH MEALS
  13. TOPROL-XL [Concomitant]
     Dosage: 100 UNK, UNK
     Route: 048
  14. GLUCOPHAGE [Concomitant]
     Dosage: 500 MG, BID
     Route: 048
  15. CODACET [Concomitant]
     Dosage: 5/20MG DAILY
     Route: 048
  16. LOPID [Concomitant]
     Dosage: 600 MG, BID
     Route: 048
  17. INSULIN [Concomitant]
     Route: 042
  18. RED BLOOD CELLS [Concomitant]
     Dosage: UNK
     Dates: start: 20070814

REACTIONS (11)
  - CEREBROVASCULAR ACCIDENT [None]
  - AMNESIA [None]
  - UNEVALUABLE EVENT [None]
  - PAIN [None]
  - EMOTIONAL DISTRESS [None]
  - STRESS [None]
  - ANXIETY [None]
  - DYSPNOEA [None]
  - FEAR [None]
  - ANHEDONIA [None]
  - INJURY [None]
